FAERS Safety Report 18412231 (Version 1)
Quarter: 2020Q4

REPORT INFORMATION
  Report Type: Spontaneous
  Country: BR (occurrence: BR)
  Receive Date: 20201022
  Receipt Date: 20201022
  Transmission Date: 20210114
  Serious: Yes (Other)
  Sender: FDA-Public Use
  Company Number: BR-ABBVIE-20P-020-3602625-00

PATIENT
  Age: 29 Year
  Sex: Female
  Weight: 62 kg

DRUGS (16)
  1. TOPAMAX [Interacting]
     Active Substance: TOPIRAMATE
     Indication: SEIZURE PROPHYLAXIS
     Dosage: 75 MG, TWICE A DAY, MORNING/ NIGHT REDUCED DUE DRUG INTERACTION
     Route: 048
  2. SILYMARINE [Concomitant]
     Indication: PROPHYLAXIS
     Dosage: UNIT DOSE: 200MG, DAILY DOSE: 400MG; SINCE 5 DAYS AGO
     Route: 048
     Dates: start: 202010
  3. L-CARNITINE [Concomitant]
     Active Substance: LEVOCARNITINE
     Indication: AMMONIA INCREASED
     Route: 048
  4. SYNTHROID [Concomitant]
     Active Substance: LEVOTHYROXINE SODIUM
     Indication: HYPOTHYROIDISM
     Dosage: USED BEFORE PURAN;
  5. TOPAMAX [Interacting]
     Active Substance: TOPIRAMATE
     Dosage: 25 MG, TWICE A DAY; MORNING/NIGHT, RESUMED PREVIOUS DOSE DUE MS; LASTED 2 DAYS
     Route: 048
  6. VITAMIN D NOS [Concomitant]
     Active Substance: VITAMIN D NOS
     Indication: VITAMIN SUPPLEMENTATION
     Route: 048
     Dates: start: 2017
  7. OMEGA 3 NATURAL [Concomitant]
     Indication: BLOOD CHOLESTEROL
     Route: 048
     Dates: start: 202010
  8. VALPAKINE [Interacting]
     Active Substance: VALPROATE SODIUM
     Indication: SEIZURE PROPHYLAXIS
     Dosage: 1 TABLET, TWICE A DAY; MORNING/ NIGHT
     Route: 048
     Dates: start: 2000
  9. FRISIUM [Concomitant]
     Active Substance: CLOBAZAM
     Indication: SEIZURE PROPHYLAXIS
     Dosage: DAILY DOSE: 25 MILLIGRAM
     Route: 048
  10. TOPAMAX [Interacting]
     Active Substance: TOPIRAMATE
     Dosage: 75 MG, TWICE A DAY; MORNING/ NIGHT;
     Route: 048
  11. LEVOTHYROXINE SODIUM. [Concomitant]
     Active Substance: LEVOTHYROXINE SODIUM
     Indication: HYPOTHYROIDISM
     Dosage: 1 TABLET ONCE A DAY; ADMINISTERED IN FASTING;
     Route: 048
     Dates: start: 202010
  12. THYMOMODULIN [Concomitant]
     Indication: IMMUNODEFICIENCY
     Route: 048
     Dates: start: 2018
  13. EZETIMIBE. [Concomitant]
     Active Substance: EZETIMIBE
     Indication: BLOOD TRIGLYCERIDES INCREASED
  14. DEPAKOTE [Suspect]
     Active Substance: DIVALPROEX SODIUM
     Indication: SEIZURE PROPHYLAXIS
     Dosage: 2 CAPSULE, TWICE A DAY; MORNING/ NIGHT
     Route: 048
     Dates: start: 2020
  15. OMEGA 3 NATURAL [Concomitant]
     Indication: BLOOD TRIGLYCERIDES
  16. EZETIMIBE. [Concomitant]
     Active Substance: EZETIMIBE
     Indication: BLOOD CHOLESTEROL INCREASED
     Route: 048
     Dates: start: 2018

REACTIONS (3)
  - Ammonia increased [Unknown]
  - Myoclonic epilepsy [Unknown]
  - Drug interaction [Unknown]
